FAERS Safety Report 8121459-2 (Version None)
Quarter: 2012Q1

REPORT INFORMATION
  Report Type: 
  Country: None (occurrence: None)
  Receive Date: 20120208
  Receipt Date: 20120206
  Transmission Date: 20120608
  Serious: No
  Sender: FDA-Public Use
  Company Number: US-PFIZER INC-2012032908

PATIENT
  Sex: Female
  Weight: 36.281 kg

DRUGS (8)
  1. CHANTIX [Interacting]
     Dosage: UNK
     Route: 048
  2. PROAIR HFA [Interacting]
     Indication: DYSPNOEA
     Dosage: UNK, 4X/DAY
     Dates: start: 20070101
  3. CHANTIX [Suspect]
     Indication: SMOKING CESSATION THERAPY
     Dosage: 0.5 MG, DAILY
     Route: 048
     Dates: start: 20090101
  4. LEVOTHYROXINE SODIUM [Interacting]
     Indication: THYROXINE THERAPY
     Dosage: UNK, DAILY
     Dates: start: 19950101
  5. SINGULAIR [Interacting]
     Indication: DYSPNOEA
     Dosage: UNK, DAILY
     Dates: start: 20080101
  6. IPRATROPIUM BROMIDE AND ALBUTEROL SULFATE [Interacting]
     Indication: DYSPNOEA
     Dosage: UNK, 4X/DAY
     Dates: start: 20060101
  7. ADVAIR DISKUS 100/50 [Interacting]
     Indication: DYSPNOEA
     Dosage: 500/50 UG, 4X/DAY
     Dates: start: 20070101
  8. NEXIUM [Interacting]
     Indication: GASTRIC DISORDER
     Dosage: UNK, DAILY
     Dates: start: 20090101

REACTIONS (2)
  - DRUG INTERACTION [None]
  - ABDOMINAL DISCOMFORT [None]
